FAERS Safety Report 7369422-3 (Version None)
Quarter: 2011Q1

REPORT INFORMATION
  Report Type: 
  Country: None (occurrence: None)
  Receive Date: 20110321
  Receipt Date: 20110321
  Transmission Date: 20110831
  Serious: Yes (Hospitalization)
  Sender: FDA-Public Use
  Company Number: None

PATIENT
  Age: 74 Year
  Sex: Male

DRUGS (9)
  1. REVLIMID [Suspect]
     Dosage: 15MG DAILY ORALLY
     Route: 048
     Dates: start: 20090501
  2. OMEPRAZOLE [Concomitant]
  3. TRAZODONE HCL [Concomitant]
  4. SEREVENT [Concomitant]
  5. PREDNISONE [Concomitant]
  6. REVLIMID [Suspect]
     Indication: MULTIPLE SCLEROSIS
     Dosage: 25MG DAILY ORALLY
     Route: 048
     Dates: start: 20080301, end: 20090501
  7. FLUTICASONE PROPIONATE [Concomitant]
  8. COMBIVENT [Concomitant]
  9. ALBUTEROL [Concomitant]

REACTIONS (4)
  - PULMONARY EMBOLISM [None]
  - LEUKOPENIA [None]
  - HYPERCOAGULATION [None]
  - DEEP VEIN THROMBOSIS [None]
